FAERS Safety Report 11838158 (Version 1)
Quarter: 2015Q4

REPORT INFORMATION
  Report Type: Spontaneous
  Country: US (occurrence: US)
  Receive Date: 20151215
  Receipt Date: 20151215
  Transmission Date: 20160305
  Serious: No
  Sender: FDA-Public Use
  Company Number: US-GLAXOSMITHKLINE-US2015GSK176874

PATIENT
  Age: 46 Year
  Sex: Female

DRUGS (2)
  1. VENTOLIN [Suspect]
     Active Substance: ALBUTEROL SULFATE
     Dosage: UNK, QID
     Dates: start: 201510, end: 201512
  2. VENTOLIN [Suspect]
     Active Substance: ALBUTEROL SULFATE
     Indication: DYSPNOEA
     Dosage: UNK, Q6H AS NEEDED
     Dates: start: 201510, end: 201512

REACTIONS (6)
  - Tremor [Unknown]
  - Dyspnoea [Unknown]
  - Palpitations [Unknown]
  - Nervousness [Unknown]
  - Drug administration error [Unknown]
  - Headache [Unknown]

NARRATIVE: CASE EVENT DATE: 201512
